FAERS Safety Report 21025583 (Version 1)
Quarter: 2022Q2

REPORT INFORMATION
  Report Type: Spontaneous
  Country: CA (occurrence: None)
  Receive Date: 20220630
  Receipt Date: 20220630
  Transmission Date: 20220721
  Serious: Yes (Death)
  Sender: FDA-Public Use
  Company Number: CA-ROCHE-3127541

PATIENT
  Age: 79 Year
  Sex: Female

DRUGS (2)
  1. TECENTRIQ [Suspect]
     Active Substance: ATEZOLIZUMAB
     Indication: Hepatocellular carcinoma
     Dosage: DRUG DOSE FIRST ADMINISTERED IS 1200.0 MILLIGRAM
     Route: 042
  2. BEVACIZUMAB [Suspect]
     Active Substance: BEVACIZUMAB
     Indication: Hepatocellular carcinoma
     Dosage: DRUG DOSE FIRST ADMINISTERED IS NOT PROVIDED THERAPY DURATION + THERAPY DURATION UNITS IS 58 DAYS
     Route: 042

REACTIONS (1)
  - Death [Fatal]
